FAERS Safety Report 8124830-8 (Version None)
Quarter: 2012Q1

REPORT INFORMATION
  Report Type: 
  Country: None (occurrence: None)
  Receive Date: 20120209
  Receipt Date: 20120206
  Transmission Date: 20120608
  Serious: Yes (Other)
  Sender: FDA-Public Use
  Company Number: US-PFIZER INC-2012032989

PATIENT
  Sex: Male
  Weight: 109 kg

DRUGS (7)
  1. ATENOLOL [Suspect]
     Indication: HYPERTENSION
     Dosage: 50 MG, 2X/DAY
     Dates: start: 20070101
  2. AMLODIPINE BESYLATE [Suspect]
     Indication: HYPERTENSION
     Dosage: 5 MG, DAILY
     Dates: start: 20070101
  3. WELLBUTRIN [Suspect]
     Indication: DEPRESSION
     Dosage: 100 MG, DAILY
     Dates: start: 20070101
  4. AMBIEN [Suspect]
     Indication: SLEEP DISORDER
     Dosage: 10 MG, DAILY
     Dates: start: 20070101
  5. NEURONTIN [Suspect]
     Indication: NERVOUS SYSTEM DISORDER
     Dosage: 300 MG, 3X/DAY
     Dates: start: 20070101
  6. CITALOPRAM [Suspect]
     Indication: ANXIETY
     Dosage: 10 MG, DAILY
     Dates: start: 20070101
  7. HYDROCHLOROTHIAZIDE [Suspect]
     Indication: HYPERTENSION
     Dosage: 25 MG, DAILY
     Dates: start: 20070101

REACTIONS (4)
  - WEIGHT BEARING DIFFICULTY [None]
  - SEXUAL DYSFUNCTION [None]
  - INTERVERTEBRAL DISC PROTRUSION [None]
  - EXOSTOSIS [None]
